FAERS Safety Report 8007459-1 (Version None)
Quarter: 2011Q4

REPORT INFORMATION
  Report Type: 
  Country: None (occurrence: None)
  Receive Date: 20111227
  Receipt Date: 20111223
  Transmission Date: 20120403
  Serious: Yes (Death, Hospitalization)
  Sender: FDA-Public Use
  Company Number: FR-MPIJNJ-2011-06607

PATIENT

DRUGS (7)
  1. DEXAMETHASONE [Suspect]
     Indication: MULTIPLE MYELOMA
     Dosage: 20 MG, UNK
     Route: 065
     Dates: start: 20111028, end: 20111210
  2. CLAMOXYL                           /00249601/ [Concomitant]
     Indication: INFECTION PROPHYLAXIS
     Dosage: 1 G, UNK
     Route: 048
     Dates: start: 20111028
  3. VELCADE [Suspect]
     Indication: MULTIPLE MYELOMA
     Dosage: 2.15 MG, CYCLIC
     Route: 065
     Dates: start: 20111028, end: 20111209
  4. BACTRIM [Concomitant]
     Indication: INFECTION PROPHYLAXIS
     Dosage: UNK
     Route: 048
     Dates: start: 20111028
  5. ZELITREX                           /01269701/ [Concomitant]
     Indication: ANTIVIRAL PROPHYLAXIS
     Dosage: 500 MG/M2, UNK
     Route: 048
     Dates: start: 20111028
  6. AREDIA [Concomitant]
     Dosage: UNK
     Route: 058
     Dates: start: 20111129
  7. REVLIMID [Suspect]
     Indication: MULTIPLE MYELOMA
     Dosage: 25 MG, UNK
     Route: 065
     Dates: start: 20111028, end: 20111212

REACTIONS (1)
  - SEPTIC SHOCK [None]
